FAERS Safety Report 18479016 (Version 4)
Quarter: 2025Q2

REPORT INFORMATION
  Report Type: Spontaneous
  Country: RO (occurrence: RO)
  Receive Date: 20201109
  Receipt Date: 20250627
  Transmission Date: 20250716
  Serious: Yes (Hospitalization, Other)
  Sender: AUROBINDO
  Company Number: RO-KRKA-RO2020K16817LIT

PATIENT
  Age: 16 Month
  Sex: Female

DRUGS (7)
  1. AMLODIPINE [Suspect]
     Active Substance: AMLODIPINE BESYLATE
     Indication: Product used for unknown indication
     Dosage: 1.25 MILLIGRAM, TWO TIMES A DAY
     Route: 065
  2. ASPIRIN [Suspect]
     Active Substance: ASPIRIN
     Indication: Product used for unknown indication
     Dosage: 37.5 MILLIGRAM, ONCE A DAY
     Route: 065
  3. BOSENTAN [Suspect]
     Active Substance: BOSENTAN
     Indication: Pulmonary arterial hypertension
     Dosage: 10 MILLIGRAM, TWO TIMES A DAY
     Route: 065
  4. BOSENTAN [Suspect]
     Active Substance: BOSENTAN
     Dosage: 18 MILLIGRAM, TWO TIMES A DAY
     Route: 065
  5. DIGOXIN [Suspect]
     Active Substance: DIGOXIN
     Indication: Product used for unknown indication
     Dosage: 0.8 MILLIGRAM, TWO TIMES A DAY
     Route: 065
  6. SILDENAFIL [Suspect]
     Active Substance: SILDENAFIL
     Indication: Pulmonary arterial hypertension
     Dosage: 10 MILLIGRAM, ONCE A DAY
     Route: 065
  7. SPIRONOLACTONE [Suspect]
     Active Substance: SPIRONOLACTONE
     Indication: Product used for unknown indication
     Dosage: 12.5 MILLIGRAM, TWO TIMES A DAY
     Route: 065

REACTIONS (4)
  - Pulmonary arterial pressure increased [Unknown]
  - Cardiomegaly [Unknown]
  - Off label use [Unknown]
  - Product use issue [Unknown]
